FAERS Safety Report 5223127-3 (Version None)
Quarter: 2007Q1

REPORT INFORMATION
  Report Type: 
  Country: None (occurrence: None)
  Receive Date: 20061201
  Receipt Date: 20060810
  Transmission Date: 20070707
  Serious: No
  Sender: FDA-Public Use
  Company Number: 2005PV000564

PATIENT
  Age: 58 Year
  Sex: Female
  Weight: 136.0791 kg

DRUGS (19)
  1. CORTISONE ACETATE [Suspect]
     Indication: ARTHROPATHY
     Dates: start: 20060501
  2. HUMALOG [Suspect]
     Indication: DIABETES MELLITUS
  3. BYETTA [Suspect]
     Indication: DIABETES MELLITUS NON-INSULIN-DEPENDENT
     Dosage: 5 MCG; BID; SC
     Route: 058
     Dates: start: 20050601
  4. SYNTHROID [Concomitant]
  5. ALLEGRA [Concomitant]
  6. SINGULAIR [Concomitant]
  7. ACCUPRIL [Concomitant]
  8. GLYBURIDE [Concomitant]
  9. METFORMIN HCL [Concomitant]
  10. NEXIUM [Concomitant]
  11. ASACOL [Concomitant]
  12. POTASSIUM CHLORIDE [Concomitant]
  13. LASIX [Concomitant]
  14. COLACE [Concomitant]
  15. OSCAL [Concomitant]
  16. ADVAIR DISKUS 100/50 [Concomitant]
  17. HUMALOG [Concomitant]
  18. LANTUS [Concomitant]
  19. CORTISONE ACETATE [Concomitant]

REACTIONS (6)
  - ABDOMINAL ABSCESS [None]
  - BLOOD GLUCOSE INCREASED [None]
  - CELLULITIS [None]
  - DRUG EFFECT DECREASED [None]
  - INJECTION SITE SWELLING [None]
  - PAIN IN EXTREMITY [None]
